FAERS Safety Report 6191758-2 (Version None)
Quarter: 2009Q2

REPORT INFORMATION
  Report Type: 
  Country: None (occurrence: None)
  Receive Date: 20090515
  Receipt Date: 20090506
  Transmission Date: 20091009
  Serious: Yes (Other)
  Sender: FDA-Public Use
  Company Number: US-PFIZER INC-2009210722

PATIENT
  Sex: Female

DRUGS (4)
  1. PROVERA [Suspect]
     Indication: HORMONE REPLACEMENT THERAPY
     Dosage: 2.5 MG, UNK
     Dates: start: 19890101, end: 19960101
  2. PREMARIN [Suspect]
     Indication: HORMONE REPLACEMENT THERAPY
     Dosage: 0.625 MG, UNK
     Dates: start: 19820101, end: 20030101
  3. PRAVACHOL [Concomitant]
     Indication: ILL-DEFINED DISORDER
     Dosage: 40 MG, 1X/DAY
     Dates: start: 20010101
  4. ATENOLOL [Concomitant]
     Indication: MYOCARDIAL INFARCTION
     Dosage: 12.5 MG, 1X/DAY
     Dates: start: 20010101

REACTIONS (1)
  - BREAST CANCER IN SITU [None]
